FAERS Safety Report 4430088-3 (Version None)
Quarter: 2004Q3

REPORT INFORMATION
  Report Type: 
  Country: None (occurrence: None)
  Receive Date: 20040820
  Receipt Date: 20040610
  Transmission Date: 20050211
  Serious: Yes (Life-Threatening)
  Sender: FDA-Public Use
  Company Number: FR-ROCHE-370718

PATIENT
  Age: 65 Year
  Sex: Female

DRUGS (6)
  1. NICARDIPINE HCL [Suspect]
     Indication: ESSENTIAL HYPERTENSION
     Route: 048
     Dates: start: 20040102
  2. LEXOMIL [Suspect]
     Indication: DRUG USE FOR UNKNOWN INDICATION
     Route: 048
     Dates: start: 20031222
  3. TAZOCILLINE [Suspect]
     Indication: PERITONITIS
     Dosage: FORM DESCRIBED AS LYOPHILISED. DRUG; TAZOCILLINE 4G/500MG
     Route: 042
     Dates: start: 20031205
  4. OMEPRAZOLE [Suspect]
     Indication: DRUG USE FOR UNKNOWN INDICATION
     Route: 048
     Dates: start: 20031214
  5. STILNOX [Suspect]
     Indication: DRUG USE FOR UNKNOWN INDICATION
     Route: 048
     Dates: start: 20031222
  6. PROZAC [Suspect]
     Indication: DRUG USE FOR UNKNOWN INDICATION
     Route: 048
     Dates: start: 20031224

REACTIONS (5)
  - CHOLESTASIS [None]
  - HENOCH-SCHONLEIN PURPURA [None]
  - HYPERSENSITIVITY [None]
  - PRURITUS [None]
  - RASH MACULO-PAPULAR [None]
